FAERS Safety Report 24528247 (Version 2)
Quarter: 2024Q4

REPORT INFORMATION
  Report Type: Spontaneous
  Country: JP (occurrence: JP)
  Receive Date: 20241021
  Receipt Date: 20241127
  Transmission Date: 20250114
  Serious: Yes (Life-Threatening, Other)
  Sender: BAYER HEALTHCARE PHARMACEUTICALS INC.
  Company Number: JP-BAYER-2024A149830

PATIENT
  Age: 77 Year
  Sex: Male

DRUGS (3)
  1. IOPROMIDE [Suspect]
     Active Substance: IOPROMIDE
     Indication: Computerised tomogram
     Dosage: 69 ML, ONCE, 60 SECONDS
     Dates: start: 20241011, end: 20241011
  2. VONOPRAZAN FUMARATE [Concomitant]
     Active Substance: VONOPRAZAN FUMARATE
     Dosage: DAILY DOSE 20 MG
  3. HEPARINOID [Concomitant]
     Dosage: 2, 3 TIMES A DAY

REACTIONS (2)
  - Anaphylactic shock [Recovered/Resolved]
  - Subdural haematoma [Not Recovered/Not Resolved]

NARRATIVE: CASE EVENT DATE: 20240101
